FAERS Safety Report 9354238 (Version 2)
Quarter: 2013Q3

REPORT INFORMATION
  Report Type: Report from Study
  Country: DE (occurrence: DE)
  Receive Date: 20130618
  Receipt Date: 20130702
  Transmission Date: 20140515
  Serious: Yes (Death, Other)
  Sender: FDA-Public Use
  Company Number: DE-ABBOTT-13P-062-1104411-00

PATIENT
  Age: 41 Year
  Sex: Male
  Weight: 103 kg

DRUGS (1)
  1. HUMIRA [Suspect]
     Indication: PSORIASIS
     Route: 058
     Dates: start: 20110829, end: 20121123

REACTIONS (3)
  - Bronchopneumonia [Fatal]
  - Brain oedema [Unknown]
  - Road traffic accident [Unknown]
